FAERS Safety Report 12815842 (Version 1)
Quarter: 2016Q4

REPORT INFORMATION
  Report Type: Spontaneous
  Country: US (occurrence: US)
  Receive Date: 20161005
  Receipt Date: 20161005
  Transmission Date: 20170207
  Serious: Yes (Other)
  Sender: FDA-Public Use
  Company Number: None

PATIENT
  Age: 1 Day
  Sex: Female
  Weight: 3.08 kg

DRUGS (4)
  1. AMPICILLIN [Concomitant]
     Active Substance: AMPICILLIN
  2. GENTAMICIN. [Concomitant]
     Active Substance: GENTAMICIN
  3. NACL 0.9%; PRESERVATIVE FREE APP PHARMACEUTICALS, LLC [Suspect]
     Active Substance: SODIUM CHLORIDE
     Indication: MEDICATION DILUTION
     Route: 042
     Dates: start: 20161002, end: 20161003
  4. HIGH CONCENTRATION SODIUM PHOSPHATES FRESENIUS KABI USA, LLC [Suspect]
     Active Substance: SODIUM PHOSPHATE, MONOBASIC, MONOHYDRATE
     Indication: ELECTROLYTE SUBSTITUTION THERAPY
     Dosage: PHOS 15 MMOL/5ML; SODIUM 20 MEQ/5ML N/A IV
     Route: 042

REACTIONS (1)
  - Product packaging confusion [None]

NARRATIVE: CASE EVENT DATE: 20161003
